FAERS Safety Report 9046494 (Version 1)
Quarter: 2013Q1

REPORT INFORMATION
  Report Type: Spontaneous
  Country: US (occurrence: US)
  Receive Date: 20130204
  Receipt Date: 20130204
  Transmission Date: 20140127
  Serious: No
  Sender: FDA-Public Use
  Company Number: US-009507513-1302USA000083

PATIENT
  Sex: Male

DRUGS (5)
  1. VICTRELIS [Suspect]
     Dosage: 200 MG, TID TAKE 4 CAPSULES ORALLY
     Route: 048
  2. PEGASYS [Suspect]
     Dosage: PROCLICK
  3. RIBAPAK [Suspect]
     Dosage: 1200/DAY
  4. BENADRYL [Concomitant]
  5. IBUPROFEN [Concomitant]

REACTIONS (5)
  - Red blood cell count decreased [Unknown]
  - Anaemia [Unknown]
  - Dizziness [Unknown]
  - Dysgeusia [Unknown]
  - Rash [Unknown]
